FAERS Safety Report 25276516 (Version 1)
Quarter: 2025Q2

REPORT INFORMATION
  Report Type: Report from Study
  Country: US (occurrence: US)
  Receive Date: 20250507
  Receipt Date: 20250507
  Transmission Date: 20250717
  Serious: Yes (Other)
  Sender: RANBAXY
  Company Number: US-SUN PHARMACEUTICAL INDUSTRIES LTD-2025R1-506310

PATIENT
  Age: 59 Year
  Sex: Male

DRUGS (1)
  1. DULOXETINE [Suspect]
     Active Substance: DULOXETINE
     Indication: Depression
     Route: 065

REACTIONS (3)
  - Erectile dysfunction [Recovered/Resolved]
  - Palpitations [Recovered/Resolved]
  - Urinary retention [Recovered/Resolved]
